FAERS Safety Report 7751497-0 (Version None)
Quarter: 2011Q3

REPORT INFORMATION
  Report Type: 
  Country: None (occurrence: None)
  Receive Date: 20110914
  Receipt Date: 20110831
  Transmission Date: 20111222
  Serious: Yes (Other)
  Sender: FDA-Public Use
  Company Number: PHHY2011BR68267

PATIENT
  Sex: Male

DRUGS (9)
  1. DIAZEPAM [Concomitant]
     Dosage: 5 MG, UNK
  2. ACETYLSALICYLIC ACID SRT [Concomitant]
     Dosage: 100 MG, UNK
  3. SIMVASTATIN [Concomitant]
     Dosage: 20 MG, UNK
  4. EXFORGE [Suspect]
     Indication: HYPERTENSION
     Dosage: 1 DF,320/10 MG
  5. FUROSEMIDE [Concomitant]
     Dosage: 40 MG, UNK
  6. CLONIDINE HYDROCHLORIDE [Concomitant]
     Dosage: 200 MG, UNK
  7. METFORMIN HCL [Suspect]
     Dosage: 850 MG, UNK
  8. GLYBURIDE [Concomitant]
     Dosage: 5 MG, UNK
  9. LEVOTHYROXINE SODIUM [Concomitant]
     Dosage: 100 MG, UNK

REACTIONS (4)
  - DIABETES MELLITUS [None]
  - BLOOD PRESSURE INADEQUATELY CONTROLLED [None]
  - HYPERTENSION [None]
  - DRUG INEFFECTIVE [None]
